FAERS Safety Report 6108892-5 (Version None)
Quarter: 2009Q1

REPORT INFORMATION
  Report Type: 
  Country: None (occurrence: None)
  Receive Date: 20090310
  Receipt Date: 20090226
  Transmission Date: 20090719
  Serious: Yes (Hospitalization)
  Sender: FDA-Public Use
  Company Number: IT-JNJFOC-20090300507

PATIENT
  Age: 65 Year
  Sex: Male

DRUGS (7)
  1. REMICADE [Suspect]
     Route: 042
  2. REMICADE [Suspect]
     Indication: RHEUMATOID ARTHRITIS
     Route: 042
  3. MEDROL [Concomitant]
     Route: 048
  4. METHOTREXATE [Concomitant]
     Indication: RHEUMATOID ARTHRITIS
     Route: 048
  5. PARIET [Concomitant]
     Route: 048
  6. URBASON [Concomitant]
     Indication: PREMEDICATION
     Route: 042
  7. TRIMETON [Concomitant]
     Indication: PREMEDICATION
     Dosage: DOSE: 1 VIAL
     Route: 042

REACTIONS (5)
  - OEDEMA PERIPHERAL [None]
  - ORAL CANDIDIASIS [None]
  - PLEURAL EFFUSION [None]
  - PNEUMONIA LEGIONELLA [None]
  - TONGUE DISCOLOURATION [None]
